FAERS Safety Report 4340778-9 (Version None)
Quarter: 2004Q2

REPORT INFORMATION
  Report Type: 
  Country: None (occurrence: None)
  Receive Date: 20040419
  Receipt Date: 20021008
  Transmission Date: 20050107
  Serious: No
  Sender: FDA-Public Use
  Company Number: US-GLAXOSMITHKLINE-A0382769A

PATIENT
  Age: 66 Year
  Sex: Female

DRUGS (2)
  1. ESKALITH [Suspect]
     Indication: DEPRESSION
     Dosage: 750MG PER DAY
     Route: 048
  2. TYLENOL (CAPLET) [Concomitant]
     Route: 048

REACTIONS (2)
  - TINNITUS [None]
  - TREMOR [None]
